FAERS Safety Report 6894360-X (Version None)
Quarter: 2010Q3

REPORT INFORMATION
  Report Type: 
  Country: None (occurrence: None)
  Receive Date: 20100726
  Receipt Date: 20100721
  Transmission Date: 20110219
  Serious: Yes (Life-Threatening)
  Sender: FDA-Public Use
  Company Number: 648010

PATIENT
  Age: 56 Year
  Sex: Male

DRUGS (3)
  1. DIGOXIN [Suspect]
     Indication: ATRIAL FIBRILLATION
  2. METOCLOPRAMIDE [Suspect]
     Indication: POSTOPERATIVE ILEUS
     Dosage: 20 MG MILLIGRAM(S), INTRAVENOUS
     Route: 042
  3. AMIODARONE HCL [Concomitant]

REACTIONS (6)
  - BRADYARRHYTHMIA [None]
  - BRADYCARDIA [None]
  - CARDIAC ARREST [None]
  - POSTOPERATIVE ILEUS [None]
  - SINUS TACHYCARDIA [None]
  - ULCER HAEMORRHAGE [None]
